FAERS Safety Report 9812315 (Version 2)
Quarter: 2014Q1

REPORT INFORMATION
  Report Type: Spontaneous
  Country: US (occurrence: US)
  Receive Date: 20140113
  Receipt Date: 20140211
  Transmission Date: 20141002
  Serious: Yes (Hospitalization, Other)
  Sender: FDA-Public Use
  Company Number: US-MERCK-1401USA003000

PATIENT
  Age: 61 Year
  Sex: Female

DRUGS (11)
  1. ZETIA [Suspect]
     Indication: BLOOD CHOLESTEROL INCREASED
     Dosage: ONE TABLET EVERY MORNING
     Route: 048
     Dates: start: 201308, end: 2013
  2. ZETIA [Suspect]
     Dosage: ONE TABLET EVERY MORNING
     Route: 048
     Dates: start: 20131230
  3. METFORMIN [Concomitant]
  4. GLYBURIDE [Concomitant]
  5. KLOR-CON [Concomitant]
  6. PLAVIX [Concomitant]
  7. BUMETANIDE [Concomitant]
  8. ASPIRIN [Concomitant]
     Route: 048
  9. VITRON-C [Concomitant]
  10. PRINIVIL [Concomitant]
     Route: 048
  11. TOPROL XL TABLETS [Concomitant]

REACTIONS (7)
  - Stent placement [Recovered/Resolved]
  - Myocardial infarction [Recovered/Resolved]
  - Paranasal sinus hypersecretion [Recovered/Resolved]
  - Oropharyngeal pain [Recovered/Resolved]
  - Pharyngeal oedema [Recovered/Resolved]
  - Swollen tongue [Recovered/Resolved]
  - Nausea [Recovered/Resolved]
